FAERS Safety Report 7500785-1 (Version None)
Quarter: 2011Q2

REPORT INFORMATION
  Report Type: 
  Country: None (occurrence: None)
  Receive Date: 20110524
  Receipt Date: 20110512
  Transmission Date: 20111010
  Serious: Yes (Hospitalization, Other)
  Sender: FDA-Public Use
  Company Number: PHHY2011BR40955

PATIENT
  Sex: Female

DRUGS (1)
  1. EXFORGE [Suspect]
     Dosage: 1 DF, 160 MG OF VALSARTAN/5 MG OF AMLODIPINE

REACTIONS (2)
  - ISCHAEMIA [None]
  - BLOOD PRESSURE FLUCTUATION [None]
